FAERS Safety Report 9732739 (Version 1)
Quarter: 2013Q4

REPORT INFORMATION
  Report Type: Spontaneous
  Country: BR (occurrence: BR)
  Receive Date: 20131204
  Receipt Date: 20131204
  Transmission Date: 20140711
  Serious: Yes (Death, Hospitalization)
  Sender: FDA-Public Use
  Company Number: BR-GLAXOSMITHKLINE-A1051934A

PATIENT
  Sex: Male
  Weight: 60 kg

DRUGS (5)
  1. AVODART [Suspect]
     Indication: BENIGN PROSTATIC HYPERPLASIA
     Dosage: .5MG UNKNOWN
     Route: 048
     Dates: start: 2012, end: 20131116
  2. CLOPIDOGREL [Concomitant]
  3. CILOSTAZOL [Concomitant]
  4. DIACQUA [Concomitant]
  5. CARVEDILOL [Concomitant]

REACTIONS (5)
  - Death [Fatal]
  - Oxygen supplementation [Unknown]
  - Cardiomegaly [Unknown]
  - Dysphagia [Unknown]
  - Cardiac disorder [Fatal]
